FAERS Safety Report 9972310 (Version 3)
Quarter: 2014Q2

REPORT INFORMATION
  Report Type: Spontaneous
  Country: JP (occurrence: JP)
  Receive Date: 20140306
  Receipt Date: 20140402
  Transmission Date: 20141212
  Serious: Yes (Other)
  Sender: FDA-Public Use
  Company Number: JP-PFIZER INC-2014053058

PATIENT
  Age: 82 Year
  Sex: Female

DRUGS (4)
  1. LIPITOR [Suspect]
     Indication: DYSLIPIDAEMIA
     Dosage: 10 MG, 1X/DAY
     Route: 048
     Dates: end: 20140217
  2. LOXONIN [Suspect]
     Dosage: 180 MG, DAILY
     Route: 048
     Dates: end: 20140217
  3. MUCOSTA [Suspect]
     Dosage: 300 MG, DAILY
     Route: 048
     Dates: end: 20140217
  4. REMINYL [Suspect]
     Dosage: 8 MG, DAILY
     Route: 048
     Dates: start: 20140125, end: 20140213

REACTIONS (1)
  - Platelet count decreased [Not Recovered/Not Resolved]
